FAERS Safety Report 7373713-X (Version None)
Quarter: 2011Q1

REPORT INFORMATION
  Report Type: 
  Country: None (occurrence: None)
  Receive Date: 20110325
  Receipt Date: 20100916
  Transmission Date: 20110831
  Serious: No
  Sender: FDA-Public Use
  Company Number: US-MYLANLABS-2010S1016934

PATIENT
  Age: 24 Year
  Sex: Female

DRUGS (5)
  1. SERTRALINE HYDROCHLORIDE [Suspect]
     Indication: PANIC DISORDER
     Dosage: 25MG TABLET WAS DIVIDED INTO 8 PIECES; 3.125MG WAS ADDED EACH DAY TO STARTING DOSE OF 3.125 MG
     Route: 048
  2. ALPRAZOLAM [Suspect]
     Indication: PANIC DISORDER
     Dosage: AS NEEDED
     Route: 065
  3. SERTRALINE HYDROCHLORIDE [Suspect]
     Dosage: 25MG TABLET WAS DIVIDED INTO 8 PIECES; 3.125MG WAS ADDED EACH DAY TO STARTING DOSE OF 3.125 MG
     Route: 048
  4. SERTRALINE HYDROCHLORIDE [Suspect]
     Dosage: 25MG TABLET WAS DIVIDED INTO 8 PIECES; 3.125MG WAS ADDED EACH DAY TO STARTING DOSE OF 3.125 MG
     Route: 048
  5. SERTRALINE HYDROCHLORIDE [Suspect]
     Dosage: 25MG TABLET WAS DIVIDED INTO 8 PIECES; 3.125MG WAS ADDED EACH DAY TO STARTING DOSE OF 3.125 MG
     Route: 048

REACTIONS (3)
  - ANXIETY [None]
  - SEDATION [None]
  - RESTLESSNESS [None]
